FAERS Safety Report 19443422 (Version 2)
Quarter: 2021Q4

REPORT INFORMATION
  Report Type: Report from Study
  Country: IT (occurrence: IT)
  Receive Date: 20210621
  Receipt Date: 20211206
  Transmission Date: 20220303
  Serious: No
  Sender: FDA-Public Use
  Company Number: IT-TAKEDA-2021TUS037610

PATIENT
  Age: 81 Year
  Sex: Male

DRUGS (13)
  1. TEDUGLUTIDE [Suspect]
     Active Substance: TEDUGLUTIDE
     Indication: Short-bowel syndrome
     Dosage: 4.6 MILLIGRAM PER MILLILITRE, 1/WEEK
     Route: 065
     Dates: start: 20200627
  2. TEDUGLUTIDE [Suspect]
     Active Substance: TEDUGLUTIDE
     Indication: Short-bowel syndrome
     Dosage: 4.6 MILLIGRAM PER MILLILITRE, 1/WEEK
     Route: 065
     Dates: start: 20200627
  3. TEDUGLUTIDE [Suspect]
     Active Substance: TEDUGLUTIDE
     Indication: Short-bowel syndrome
     Dosage: 4.6 MILLIGRAM PER MILLILITRE, 1/WEEK
     Route: 065
     Dates: start: 20200627
  4. TEDUGLUTIDE [Suspect]
     Active Substance: TEDUGLUTIDE
     Indication: Short-bowel syndrome
     Dosage: 4.6 MILLIGRAM PER MILLILITRE, 1/WEEK
     Route: 065
     Dates: start: 20200627
  5. TEDUGLUTIDE [Suspect]
     Active Substance: TEDUGLUTIDE
     Dosage: 4.65 MILLIGRAM, QD
     Route: 065
     Dates: start: 20200627
  6. TEDUGLUTIDE [Suspect]
     Active Substance: TEDUGLUTIDE
     Dosage: 4.65 MILLIGRAM, QD
     Route: 065
     Dates: start: 20200627
  7. TEDUGLUTIDE [Suspect]
     Active Substance: TEDUGLUTIDE
     Dosage: 4.65 MILLIGRAM, QD
     Route: 065
     Dates: start: 20200627
  8. TEDUGLUTIDE [Suspect]
     Active Substance: TEDUGLUTIDE
     Dosage: 4.65 MILLIGRAM, QD
     Route: 065
     Dates: start: 20200627
  9. PANTOPRAZOLE [Concomitant]
     Active Substance: PANTOPRAZOLE
     Indication: Prophylaxis
     Dosage: 40 MILLIGRAM, PRN
     Route: 048
  10. CHOLECALCIFEROL [Concomitant]
     Active Substance: CHOLECALCIFEROL
     Indication: Supplementation therapy
     Dosage: 300000 INTERNATIONAL UNIT, QD
     Route: 048
     Dates: start: 2015
  11. GLUCOSALINE [Concomitant]
     Indication: Supplementation therapy
     Dosage: 1 DOSAGE FORM, PRN
     Route: 048
     Dates: start: 2015
  12. ASPIRIN [Concomitant]
     Active Substance: ASPIRIN
     Dosage: UNK, QD
     Route: 048
  13. FERROUS SULFATE [Concomitant]
     Active Substance: FERROUS SULFATE
     Indication: Iron deficiency anaemia
     Dosage: UNK, QD
     Route: 048
     Dates: start: 20210802

REACTIONS (1)
  - Lipoma [Recovered/Resolved]

NARRATIVE: CASE EVENT DATE: 20210304
